FAERS Safety Report 4441656-7 (Version None)
Quarter: 2004Q3

REPORT INFORMATION
  Report Type: 
  Country: None (occurrence: None)
  Receive Date: 20040903
  Receipt Date: 20040820
  Transmission Date: 20050211
  Serious: Yes (Hospitalization, Other)
  Sender: FDA-Public Use
  Company Number: 04-00496

PATIENT

DRUGS (1)
  1. NAPROXEN [Suspect]

REACTIONS (4)
  - DIVERTICULITIS [None]
  - INTESTINAL OBSTRUCTION [None]
  - INTESTINAL PERFORATION [None]
  - ULCER [None]
